FAERS Safety Report 6112420-8 (Version None)
Quarter: 2009Q1

REPORT INFORMATION
  Report Type: 
  Country: None (occurrence: None)
  Receive Date: 20090312
  Receipt Date: 20090226
  Transmission Date: 20090719
  Serious: Yes (Other)
  Sender: FDA-Public Use
  Company Number: PHHY2009PL07555

PATIENT
  Sex: Male

DRUGS (4)
  1. LEPONEX [Suspect]
     Dosage: 600 MG
  2. LEPONEX [Suspect]
     Dosage: 25 MG
  3. VIVACE [Concomitant]
  4. KLOZAPOL [Concomitant]

REACTIONS (6)
  - BONE PAIN [None]
  - DISORIENTATION [None]
  - DIZZINESS [None]
  - HEADACHE [None]
  - HYPERTENSION [None]
  - VISUAL IMPAIRMENT [None]
